FAERS Safety Report 5423093-1 (Version None)
Quarter: 2007Q3

REPORT INFORMATION
  Report Type: 
  Country: None (occurrence: None)
  Receive Date: 20070822
  Receipt Date: 20070806
  Transmission Date: 20080115
  Serious: Yes (Death)
  Sender: FDA-Public Use
  Company Number: 2007001361

PATIENT
  Age: 9 Year
  Sex: Male

DRUGS (10)
  1. ERLOTINIB (TABLET) [Suspect]
     Indication: GLIOBLASTOMA MULTIFORME
     Dosage: 129 MG (QD), ORAL
     Route: 048
     Dates: start: 20070525, end: 20070626
  2. MORPHINE [Concomitant]
  3. NOZINAN (LEVOMEPROMAZINE) [Concomitant]
  4. FLUCONAZOLE [Concomitant]
  5. OXYCODONE HCL [Concomitant]
  6. OXYCONTIN [Concomitant]
  7. DEXAMETHASONE TAB [Concomitant]
  8. ACETAMINOPHEN [Concomitant]
  9. POTASSIUM CHLORIDE [Concomitant]
  10. LORAZEPAM [Concomitant]

REACTIONS (5)
  - BRAIN STEM GLIOMA [None]
  - GENERAL PHYSICAL HEALTH DETERIORATION [None]
  - GRAND MAL CONVULSION [None]
  - INTRACRANIAL PRESSURE INCREASED [None]
  - MALIGNANT NEOPLASM PROGRESSION [None]
